FAERS Safety Report 7324290-0 (Version None)
Quarter: 2011Q1

REPORT INFORMATION
  Report Type: 
  Country: None (occurrence: None)
  Receive Date: 20110301
  Receipt Date: 20110220
  Transmission Date: 20110831
  Serious: Yes (Other)
  Sender: FDA-Public Use
  Company Number: VE-AMGEN-VENSP2011010343

PATIENT
  Age: 50 Year
  Sex: Female

DRUGS (5)
  1. EUDAN                              /00035001/ [Concomitant]
     Indication: HYPERTENSION
     Dosage: UNK
     Route: 048
     Dates: start: 20110125
  2. ENBREL [Suspect]
     Indication: RHEUMATOID ARTHRITIS
     Dosage: 25 MG, 2X/WEEK
     Route: 058
     Dates: start: 20110120
  3. ISONIAZID [Concomitant]
     Indication: PROPHYLAXIS
     Dosage: UNK
     Route: 048
     Dates: start: 20101114
  4. RAMIPRIL [Concomitant]
     Indication: HYPERTENSION
     Dosage: 5 MG, 2X/DAY
     Route: 048
     Dates: start: 20110125
  5. TENSOMAX [Concomitant]
     Indication: HYPERTENSION
     Dosage: 30 MG, 2X/DAY
     Route: 048
     Dates: start: 20110125

REACTIONS (7)
  - DIARRHOEA [None]
  - HYPERTENSIVE CRISIS [None]
  - HERPES SIMPLEX [None]
  - CHILLS [None]
  - NASAL ABSCESS [None]
  - DISCOMFORT [None]
  - PYREXIA [None]
